FAERS Safety Report 5055601-7 (Version None)
Quarter: 2006Q3

REPORT INFORMATION
  Report Type: 
  Country: None (occurrence: None)
  Receive Date: 20060714
  Receipt Date: 20060630
  Transmission Date: 20061208
  Serious: Yes (Death, Other)
  Sender: FDA-Public Use
  Company Number: US200605006836

PATIENT
  Age: 69 Year
  Sex: Male

DRUGS (1)
  1. HUMULIN N [Suspect]
     Indication: DIABETES MELLITUS
     Dosage: 30 UG, DAILY (1/D)
     Dates: start: 20010101

REACTIONS (4)
  - DIABETIC NEPHROPATHY [None]
  - DIALYSIS [None]
  - RENAL FAILURE [None]
  - THROMBOSIS IN DEVICE [None]
